FAERS Safety Report 22319425 (Version 3)
Quarter: 2024Q2

REPORT INFORMATION
  Report Type: Spontaneous
  Country: US (occurrence: US)
  Receive Date: 20230515
  Receipt Date: 20240530
  Transmission Date: 20240716
  Serious: Yes (Other)
  Sender: FDA-Public Use
  Company Number: US-TORRENT-00012650

PATIENT
  Sex: Female

DRUGS (1)
  1. ARIPIPRAZOLE [Suspect]
     Active Substance: ARIPIPRAZOLE
     Indication: Fatigue
     Dosage: UNKNOWN, STARTED TAKING THREE WEEKS AGO
     Route: 065
     Dates: start: 202304

REACTIONS (5)
  - Drug ineffective [Unknown]
  - Respiratory depression [Unknown]
  - Feeling abnormal [Unknown]
  - Arthralgia [Unknown]
  - Sleep disorder [Unknown]
